FAERS Safety Report 9272159 (Version 1)
Quarter: 2013Q2

REPORT INFORMATION
  Report Type: Spontaneous
  Country: US (occurrence: US)
  Receive Date: 20130506
  Receipt Date: 20130506
  Transmission Date: 20140414
  Serious: Yes (Hospitalization)
  Sender: FDA-Public Use
  Company Number: US-BAYER-2013-053977

PATIENT
  Age: 21 Year
  Sex: Female
  Weight: 62.59 kg

DRUGS (4)
  1. BEYAZ [Suspect]
  2. CENTRUM [Concomitant]
     Route: 048
  3. PERCOCET [Concomitant]
  4. TORADOL [Concomitant]

REACTIONS (1)
  - Pulmonary embolism [None]
